FAERS Safety Report 18457555 (Version 3)
Quarter: 2021Q2

REPORT INFORMATION
  Report Type: Spontaneous
  Country: US (occurrence: US)
  Receive Date: 20201030
  Receipt Date: 20210621
  Transmission Date: 20210717
  Serious: Yes (Other)
  Sender: FDA-Public Use
  Company Number: US-GILEAD-2020-0501795

PATIENT
  Age: 52 Year
  Sex: Male
  Weight: 58.05 kg

DRUGS (24)
  1. VIREAD [Suspect]
     Active Substance: TENOFOVIR DISOPROXIL FUMARATE
     Dosage: UNK
     Route: 065
     Dates: start: 201810
  2. ATORVASTATIN [Concomitant]
     Active Substance: ATORVASTATIN
  3. POLYETHYLENE GLYCOL 3350. [Concomitant]
     Active Substance: POLYETHYLENE GLYCOL 3350
  4. HYDROCODONE/ACETAMINOPHEN [Concomitant]
     Active Substance: ACETAMINOPHEN\HYDROCODONE
  5. XANAX [Concomitant]
     Active Substance: ALPRAZOLAM
  6. LORAZEPAM. [Concomitant]
     Active Substance: LORAZEPAM
  7. DIPHENOXYLATE [Concomitant]
     Active Substance: DIPHENOXYLATE
  8. LOSARTAN. [Concomitant]
     Active Substance: LOSARTAN
  9. TACROLIMUS. [Concomitant]
     Active Substance: TACROLIMUS
  10. ATIVAN [Concomitant]
     Active Substance: LORAZEPAM
  11. GABAPENTIN. [Concomitant]
     Active Substance: GABAPENTIN
  12. ZETIA [Concomitant]
     Active Substance: EZETIMIBE
  13. TYLENOL [Concomitant]
     Active Substance: ACETAMINOPHEN
  14. LANTUS [Concomitant]
     Active Substance: INSULIN GLARGINE
  15. EPIVIR [Concomitant]
     Active Substance: LAMIVUDINE
  16. VIREAD [Suspect]
     Active Substance: TENOFOVIR DISOPROXIL FUMARATE
     Indication: HEPATITIS B
     Dosage: UNK
     Route: 048
     Dates: start: 200110, end: 201809
  17. NOVOLOG [Concomitant]
     Active Substance: INSULIN ASPART
  18. ALKA?SELTZER ORIGINAL [Concomitant]
     Active Substance: ANHYDROUS CITRIC ACID\ASPIRIN\SODIUM BICARBONATE
  19. VALIUM [Concomitant]
     Active Substance: DIAZEPAM
  20. PREDNISONE. [Concomitant]
     Active Substance: PREDNISONE
  21. MAGNESIUM OXIDE. [Concomitant]
     Active Substance: MAGNESIUM OXIDE
  22. CIPROFLOXACIN. [Concomitant]
     Active Substance: CIPROFLOXACIN
  23. CARVEDILOL. [Concomitant]
     Active Substance: CARVEDILOL
  24. NEXIUM I.V. [Concomitant]
     Active Substance: ESOMEPRAZOLE SODIUM

REACTIONS (13)
  - Gait disturbance [Unknown]
  - Chronic kidney disease [Not Recovered/Not Resolved]
  - Renal failure [Not Recovered/Not Resolved]
  - Focal segmental glomerulosclerosis [Unknown]
  - Emotional distress [Unknown]
  - Anxiety [Unknown]
  - Pain [Unknown]
  - Depression [Unknown]
  - Arteriosclerosis [Unknown]
  - Weight decreased [Unknown]
  - Proteinuria [Unknown]
  - Glomerulonephritis [Unknown]
  - Bone density decreased [Not Recovered/Not Resolved]

NARRATIVE: CASE EVENT DATE: 201406
